FAERS Safety Report 19589404 (Version 1)
Quarter: 2021Q3

REPORT INFORMATION
  Report Type: Report from Study
  Country: US (occurrence: US)
  Receive Date: 20210721
  Receipt Date: 20210721
  Transmission Date: 20211014
  Serious: No
  Sender: FDA-Public Use
  Company Number: NVSC2021US160342

PATIENT
  Age: 75 Year
  Sex: Male

DRUGS (1)
  1. ENTRESTO [Suspect]
     Active Substance: SACUBITRIL\VALSARTAN
     Indication: PRODUCT USED FOR UNKNOWN INDICATION
     Dosage: (24/26 MG), BID
     Route: 065
     Dates: start: 202105

REACTIONS (2)
  - Feeling cold [Unknown]
  - Urine output increased [Recovering/Resolving]

NARRATIVE: CASE EVENT DATE: 202105
